FAERS Safety Report 4539424-0 (Version None)
Quarter: 2004Q4

REPORT INFORMATION
  Report Type: 
  Country: None (occurrence: None)
  Receive Date: 20041223
  Receipt Date: 20041206
  Transmission Date: 20050328
  Serious: Yes (Other)
  Sender: FDA-Public Use
  Company Number: US_0412109210

PATIENT
  Sex: Male

DRUGS (1)
  1. ZYPREXA [Suspect]
     Indication: POST-TRAUMATIC STRESS DISORDER
     Dates: start: 19980301, end: 19991101

REACTIONS (3)
  - DIABETES MELLITUS INSULIN-DEPENDENT [None]
  - HEPATIC STEATOSIS [None]
  - PANCREATITIS [None]
